FAERS Safety Report 6039149-9 (Version None)
Quarter: 2009Q1

REPORT INFORMATION
  Report Type: 
  Country: None (occurrence: None)
  Receive Date: 20090115
  Receipt Date: 20090105
  Transmission Date: 20090719
  Serious: Yes (Other)
  Sender: FDA-Public Use
  Company Number: CH-PFIZER INC-2007100286

PATIENT

DRUGS (3)
  1. LYRICA [Suspect]
     Dosage: 75 MG, 2X/DAY
     Route: 048
     Dates: start: 20070822, end: 20070924
  2. TRAMADOL HCL [Suspect]
     Indication: PAIN
     Route: 048
     Dates: start: 20070903, end: 20070926
  3. DAFALGAN [Concomitant]
     Route: 048

REACTIONS (1)
  - EPILEPSY [None]
